FAERS Safety Report 4433762-8 (Version None)
Quarter: 2004Q3

REPORT INFORMATION
  Report Type: 
  Country: None (occurrence: None)
  Receive Date: 20040825
  Receipt Date: 20040809
  Transmission Date: 20050211
  Serious: No
  Sender: FDA-Public Use
  Company Number: DSA_24807_2004

PATIENT
  Age: 63 Year
  Sex: Male
  Weight: 113.3993 kg

DRUGS (4)
  1. VASOTEC [Suspect]
     Dosage: 80 MG BID PO
     Route: 048
     Dates: start: 20040501
  2. COZAAR [Concomitant]
  3. HUMULIN R [Concomitant]
  4. LANTUS [Concomitant]

REACTIONS (2)
  - INTERVERTEBRAL DISC PROTRUSION [None]
  - NEPHROLITHIASIS [None]
